FAERS Safety Report 8533936-0 (Version None)
Quarter: 2012Q3

REPORT INFORMATION
  Report Type: 
  Country: None (occurrence: None)
  Receive Date: 20120703
  Receipt Date: 20120620
  Transmission Date: 20120928
  Serious: Yes (Other)
  Sender: FDA-Public Use
  Company Number: AEUSA201200334

PATIENT
  Age: 51 Year
  Sex: Male
  Weight: 77.1115 kg

DRUGS (4)
  1. PROLASTIN-C [Suspect]
     Indication: ALPHA-1 ANTI-TRYPSIN DEFICIENCY
     Dosage: 4968 MG;QW;IV
     Route: 042
     Dates: start: 20100101
  2. ADVAIR [Concomitant]
  3. ALBUTEROL [Concomitant]
  4. DOXYCYCLINE HCL [Concomitant]

REACTIONS (1)
  - ANAPHYLACTIC REACTION [None]
